FAERS Safety Report 9886510 (Version 2)
Quarter: 2014Q3

REPORT INFORMATION
  Report Type: Spontaneous
  Country: US (occurrence: US)
  Receive Date: 20140210
  Receipt Date: 20140728
  Transmission Date: 20150326
  Serious: Yes (Hospitalization, Other)
  Sender: FDA-Public Use
  Company Number: US-009507513-1402USA004205

PATIENT
  Sex: Female

DRUGS (1)
  1. NUVARING [Suspect]
     Active Substance: ETHINYL ESTRADIOL\ETONOGESTREL
     Dosage: UNK UNK, Q3W
     Route: 067
     Dates: start: 201302

REACTIONS (3)
  - Deep vein thrombosis [Recovering/Resolving]
  - Deafness neurosensory [Recovering/Resolving]
  - Pulmonary embolism [Recovering/Resolving]

NARRATIVE: CASE EVENT DATE: 201304
